FAERS Safety Report 16362673 (Version 5)
Quarter: 2019Q3

REPORT INFORMATION
  Report Type: Report from Study
  Country: US (occurrence: US)
  Receive Date: 20190528
  Receipt Date: 20190715
  Transmission Date: 20191004
  Serious: Yes (Death, Other)
  Sender: FDA-Public Use
  Company Number: US-BAYER-2019-098555

PATIENT
  Age: 66 Year
  Sex: Female
  Weight: 80.27 kg

DRUGS (29)
  1. PROCHLORPERAZINE. [Concomitant]
     Active Substance: PROCHLORPERAZINE
     Dosage: 10 MG
  2. ZYRTEC [Concomitant]
     Active Substance: CETIRIZINE HYDROCHLORIDE
  3. STIVARGA [Suspect]
     Active Substance: REGORAFENIB
     Indication: METASTASIS
  4. NEURONTIN [Concomitant]
     Active Substance: GABAPENTIN
     Dosage: 100 MG
  5. VITAMINS NOS [Concomitant]
     Active Substance: VITAMINS
  6. FLONASE ALLERGY RELIEF [Concomitant]
     Active Substance: FLUTICASONE PROPIONATE
  7. ACETAMINOPHEN;HYDROCODONE [Concomitant]
     Active Substance: ACETAMINOPHEN\HYDROCODONE
  8. GABAPENTIN. [Concomitant]
     Active Substance: GABAPENTIN
  9. SINGULAIR [Concomitant]
     Active Substance: MONTELUKAST SODIUM
  10. METOPROLOL SUCCINATE. [Concomitant]
     Active Substance: METOPROLOL SUCCINATE
  11. GLIMEPIRIDE. [Concomitant]
     Active Substance: GLIMEPIRIDE
  12. LEVOFLOXACIN. [Concomitant]
     Active Substance: LEVOFLOXACIN
  13. ZOFRAN [Concomitant]
     Active Substance: ONDANSETRON HYDROCHLORIDE
  14. ESOMEPRAZOLE. [Concomitant]
     Active Substance: ESOMEPRAZOLE MAGNESIUM
  15. ESOMEPRAZOLE. [Concomitant]
     Active Substance: ESOMEPRAZOLE MAGNESIUM
     Dosage: 20 MG
  16. STIVARGA [Suspect]
     Active Substance: REGORAFENIB
     Indication: METASTASES TO BONE
  17. PROCHLORPERAZINE. [Concomitant]
     Active Substance: PROCHLORPERAZINE
     Dosage: UNK
  18. LANTUS [Concomitant]
     Active Substance: INSULIN GLARGINE
  19. STIVARGA [Suspect]
     Active Substance: REGORAFENIB
     Indication: COLON CANCER
     Dosage: 80 MG DAILY FOR 3 OF 4 WEEKS
     Route: 048
     Dates: start: 20190509, end: 20190521
  20. STIVARGA [Suspect]
     Active Substance: REGORAFENIB
     Indication: METASTASES TO LUNG
     Dosage: 40 MG  DAILY FOR 3 OF 4 WEEKS
     Route: 048
     Dates: start: 20190522
  21. METFORMIN [Concomitant]
     Active Substance: METFORMIN HYDROCHLORIDE
  22. IPRATROPIUM BROMIDE AND ALBUTEROL SULFATE [Concomitant]
     Active Substance: ALBUTEROL SULFATE\IPRATROPIUM BROMIDE
  23. LOSARTAN AND HYDROCHLOROTHIAZIDE [Concomitant]
     Active Substance: HYDROCHLOROTHIAZIDE\LOSARTAN POTASSIUM
  24. TYLENOL [Concomitant]
     Active Substance: ACETAMINOPHEN
  25. TRANSDERM SCOP [Concomitant]
     Active Substance: SCOPOLAMINE
  26. STIVARGA [Suspect]
     Active Substance: REGORAFENIB
     Indication: METASTASES TO CENTRAL NERVOUS SYSTEM
  27. SIMVASTATIN. [Concomitant]
     Active Substance: SIMVASTATIN
     Dosage: 20 MG
  28. LEVOTHYROXINE SODIUM. [Concomitant]
     Active Substance: LEVOTHYROXINE SODIUM
  29. DEXAMETHASONE. [Concomitant]
     Active Substance: DEXAMETHASONE

REACTIONS (23)
  - Death [Fatal]
  - Adverse drug reaction [None]
  - Skin exfoliation [None]
  - Radiotherapy [None]
  - Vocal cord paralysis [None]
  - Asthenia [None]
  - Pain in extremity [None]
  - Urine output decreased [None]
  - Decreased activity [Unknown]
  - Feeding disorder [None]
  - Erythema [None]
  - Dysphonia [None]
  - Mucosal inflammation [None]
  - Dysphagia [None]
  - Oral candidiasis [None]
  - Off label use [None]
  - Fatigue [Not Recovered/Not Resolved]
  - Drug intolerance [None]
  - Gait disturbance [None]
  - Weight decreased [None]
  - Fluid intake reduced [None]
  - Alopecia [None]
  - Adverse drug reaction [Unknown]

NARRATIVE: CASE EVENT DATE: 201905
